FAERS Safety Report 21265196 (Version 2)
Quarter: 2022Q4

REPORT INFORMATION
  Report Type: Spontaneous
  Country: JP (occurrence: JP)
  Receive Date: 20220829
  Receipt Date: 20221004
  Transmission Date: 20230113
  Serious: Yes (Death)
  Sender: FDA-Public Use
  Company Number: JP-BAYER-2022A120015

PATIENT
  Age: 88 Year
  Sex: Female
  Weight: 46.5 kg

DRUGS (21)
  1. VERICIGUAT HYDROCHLORIDE [Suspect]
     Active Substance: VERICIGUAT HYDROCHLORIDE
     Indication: Cardiac failure chronic
     Dosage: 2.5 MG, ONCE A DAY, AFTER DINNER
     Dates: start: 20220603, end: 20220818
  2. TULOBUTEROL [Concomitant]
     Active Substance: TULOBUTEROL
     Dosage: OM
  3. FUROSEMIDE [Concomitant]
     Active Substance: FUROSEMIDE
     Dosage: ONCE A DAY, AFTER LUNCH
  4. SAMSCA [Concomitant]
     Active Substance: TOLVAPTAN
     Dosage: ONCE A DAY, AFTER BREAKFAST
  5. TORSEMIDE [Concomitant]
     Active Substance: TORSEMIDE
     Dosage: ONCE A DAY, AFTER BREAKFAST
  6. FEBUXOSTAT [Concomitant]
     Active Substance: FEBUXOSTAT
     Dosage: ONCE A DAY, AFTER BREAKFAST
  7. BISOPROLOL FUMARATE [Concomitant]
     Active Substance: BISOPROLOL FUMARATE
     Dosage: ONCE A DAY, AFTER BREAKFAST
  8. TENELIGLIPTIN [Concomitant]
     Active Substance: TENELIGLIPTIN
     Dosage: ONCE A DAY, AFTER BREAKFAST, 2 DF
  9. AZOSEMIDE [Concomitant]
     Active Substance: AZOSEMIDE
     Dosage: ONCE A DAY, AFTER BREAKFAST
  10. FERROUS CITRATE [Concomitant]
     Active Substance: FERROUS CITRATE
     Dosage: ONCE A DAY, AFTER DINNER
  11. HERBALS [Concomitant]
     Active Substance: HERBALS
     Dosage: TWICE DAILY, AFTER BREAKFAST AND LUNCH
  12. MIYA-BM [Concomitant]
     Active Substance: CLOSTRIDIUM BUTYRICUM SPORES STRAIN M-55
     Dosage: THREE TIMES DAILY, AFTER EACH MEAL
  13. LIMAPROST [Concomitant]
     Active Substance: LIMAPROST
     Dosage: 3 TIMES A DAY, AFTER EACH MEAL
  14. DIETARY SUPPLEMENT\UBIDECARENONE [Concomitant]
     Active Substance: DIETARY SUPPLEMENT\UBIDECARENONE
     Dosage: THREE TIMES A DAY, AFTER EACH MEAL
  15. SENNOSIDES [Concomitant]
     Active Substance: SENNOSIDES
     Dosage: ONCE A DAY, BEFORE SLEEP
  16. DAYVIGO [Concomitant]
     Active Substance: LEMBOREXANT
     Dosage: ONCE A DAY, BEFORE SLEEP
  17. ENTRESTO [Concomitant]
     Active Substance: SACUBITRIL\VALSARTAN
     Dosage: TWICE DAILY, AFTER BREAKFAST AND DINNER
  18. AMITIZA [Concomitant]
     Active Substance: LUBIPROSTONE
     Dosage: TWICE DAILY, AFTER BREAKFAST AND DINNER
  19. FEXOFENADINE HYDROCHLORIDE [Concomitant]
     Active Substance: FEXOFENADINE HYDROCHLORIDE
     Dosage: TWICE DAILY, AFTER BREAKFAST AND DINNER
  20. WARFARIN [Concomitant]
     Active Substance: WARFARIN
     Dosage: ONCE A DAY, AFTER LUNCH
  21. SODIUM CHLORIDE [Concomitant]
     Active Substance: SODIUM CHLORIDE
     Dosage: THREE TIMES A DAY, AFTER EACH MEAL

REACTIONS (1)
  - Death [Fatal]

NARRATIVE: CASE EVENT DATE: 20220820
